FAERS Safety Report 5125877-6 (Version None)
Quarter: 2006Q4

REPORT INFORMATION
  Report Type: 
  Country: None (occurrence: None)
  Receive Date: 20061012
  Receipt Date: 20060510
  Transmission Date: 20070319
  Serious: Yes (Disabling, Other)
  Sender: FDA-Public Use
  Company Number: AU-GLAXOSMITHKLINE-B0423966A

PATIENT
  Age: 74 Year
  Sex: Male
  Weight: 84 kg

DRUGS (24)
  1. AVANDIA [Suspect]
     Dosage: 8MG PER DAY
     Route: 065
     Dates: start: 20051219, end: 20060130
  2. GOPTEN [Concomitant]
     Route: 065
     Dates: start: 20060127
  3. METFORMIN HCL [Concomitant]
     Dosage: 500MG THREE TIMES PER DAY
     Route: 065
     Dates: start: 20051116
  4. GLIMEPIRIDE [Concomitant]
     Dosage: 4MG PER DAY
     Route: 065
     Dates: start: 20060805
  5. NATRILIX SR [Concomitant]
     Dosage: 1.5MG PER DAY
     Route: 065
     Dates: start: 20060408
  6. NORVASC [Concomitant]
     Dosage: 10MG PER DAY
     Route: 065
     Dates: start: 20060512
  7. RANITIDINE [Concomitant]
     Dosage: 150MG TWICE PER DAY
     Route: 065
     Dates: start: 20050916
  8. TEMAZE [Concomitant]
     Dosage: 10MG PER DAY
     Route: 065
     Dates: start: 20051121
  9. FML [Concomitant]
     Dosage: 1DROP THREE TIMES PER DAY
     Route: 065
     Dates: start: 20060610
  10. LIPITOR [Concomitant]
     Dosage: 20MG PER DAY
     Route: 065
     Dates: start: 20050916
  11. AVAPRO [Concomitant]
     Dosage: 300MG PER DAY
     Route: 048
     Dates: start: 20050906
  12. POLYVINYL ALCOHOL [Concomitant]
     Route: 047
     Dates: start: 20060304
  13. GOPTEN [Concomitant]
     Dosage: 2MG PER DAY
     Route: 065
     Dates: start: 20060906
  14. AVANDIA [Concomitant]
     Dosage: 8MG PER DAY
     Route: 065
     Dates: start: 20051219
  15. METOPROLOL TARTRATE [Concomitant]
     Dosage: 50MG TWICE PER DAY
     Route: 065
     Dates: start: 20060202
  16. NITROGLYCERIN [Concomitant]
     Dosage: 600MCG AS REQUIRED
     Route: 060
     Dates: start: 20060727
  17. TRITACE [Concomitant]
     Dosage: 1.25MG PER DAY
     Route: 065
     Dates: start: 20060720
  18. NORVASC [Concomitant]
     Dosage: 7.5MG PER DAY
     Route: 065
     Dates: start: 20050916
  19. GLIMEPIRIDE [Concomitant]
     Dosage: 4MG PER DAY
     Route: 065
     Dates: start: 20051231
  20. TRIMETHOPRIM [Concomitant]
     Dosage: 300MG PER DAY
     Route: 065
     Dates: start: 20050906
  21. CHLORSIG [Concomitant]
     Dosage: 2DROP FOUR TIMES PER DAY
     Route: 047
     Dates: start: 20051031
  22. ATROPINE + DIPHENOXYLATE [Concomitant]
     Dosage: 2.5MG THREE TIMES PER DAY
     Route: 065
     Dates: start: 20051031
  23. CEFACLOR [Concomitant]
     Dosage: 375MG TWICE PER DAY
     Route: 065
     Dates: start: 20051028
  24. ROXITHROMYCIN [Concomitant]
     Dosage: 300MG PER DAY
     Route: 065
     Dates: start: 20051024

REACTIONS (3)
  - BLINDNESS [None]
  - HYPERGLYCAEMIA [None]
  - MACULAR OEDEMA [None]
